FAERS Safety Report 4986335-2 (Version None)
Quarter: 2006Q2

REPORT INFORMATION
  Report Type: 
  Country: None (occurrence: None)
  Receive Date: 20060428
  Receipt Date: 20051128
  Transmission Date: 20061013
  Serious: Yes (Hospitalization)
  Sender: FDA-Public Use
  Company Number: US-MERCK-0511USA04345

PATIENT
  Age: 58 Year
  Sex: Male
  Weight: 155 kg

DRUGS (5)
  1. VIOXX [Suspect]
     Indication: ARTHRALGIA
     Route: 048
     Dates: start: 20031101, end: 20041001
  2. VIOXX [Suspect]
     Route: 048
     Dates: start: 19990101
  3. ADVIL [Concomitant]
     Indication: PAIN
     Route: 065
  4. TYLENOL (CAPLET) [Concomitant]
     Indication: PAIN
     Route: 065
  5. ALEVE [Concomitant]
     Indication: PAIN
     Route: 065

REACTIONS (4)
  - DEEP VEIN THROMBOSIS [None]
  - OEDEMA PERIPHERAL [None]
  - VENOUS THROMBOSIS [None]
  - VISION BLURRED [None]
